FAERS Safety Report 7637676-1 (Version None)
Quarter: 2011Q3

REPORT INFORMATION
  Report Type: 
  Country: None (occurrence: None)
  Receive Date: 20110726
  Receipt Date: 20110715
  Transmission Date: 20111222
  Serious: Yes (Hospitalization, Other)
  Sender: FDA-Public Use
  Company Number: US-AMGEN-USASP2011036264

PATIENT
  Age: 66 Year
  Sex: Female

DRUGS (2)
  1. ENBREL [Suspect]
     Indication: RHEUMATOID ARTHRITIS
     Dosage: 50 MG, QWK
     Dates: start: 20070101
  2. METHOTREXATE [Concomitant]
     Dosage: 1 MG, QWK
     Dates: start: 20060101

REACTIONS (11)
  - NODULE [None]
  - BACK PAIN [None]
  - PAIN [None]
  - HAND DEFORMITY [None]
  - SYSTEMIC LUPUS ERYTHEMATOSUS [None]
  - GAIT DISTURBANCE [None]
  - PAIN IN EXTREMITY [None]
  - FALL [None]
  - SPINAL ROD INSERTION [None]
  - SURGERY [None]
  - HYPOAESTHESIA [None]
